FAERS Safety Report 7287748-9 (Version None)
Quarter: 2011Q1

REPORT INFORMATION
  Report Type: 
  Country: None (occurrence: None)
  Receive Date: 20110207
  Receipt Date: 20110207
  Transmission Date: 20110831
  Serious: No
  Sender: FDA-Public Use
  Company Number: None

PATIENT
  Age: 47 Year
  Sex: Male
  Weight: 86.1834 kg

DRUGS (1)
  1. OXYCONTIN [Suspect]
     Indication: INTERVERTEBRAL DISC PROTRUSION
     Dosage: 4 DAILY PO
     Route: 048
     Dates: start: 20101002, end: 20110204

REACTIONS (2)
  - DRUG EFFECT DECREASED [None]
  - ABDOMINAL DISCOMFORT [None]
